FAERS Safety Report 13667643 (Version 10)
Quarter: 2018Q2

REPORT INFORMATION
  Report Type: Report from Study
  Country: None (occurrence: US)
  Receive Date: 20170620
  Receipt Date: 20180607
  Transmission Date: 20180711
  Serious: Yes (Hospitalization)
  Sender: FDA-Public Use
  Company Number: US-ABBVIE-17K-163-1884374-00

PATIENT
  Sex: Male
  Weight: 86.71 kg

DRUGS (19)
  1. ZOFRAN [Concomitant]
     Active Substance: ONDANSETRON HYDROCHLORIDE
     Indication: NAUSEA
  2. CRESTOR [Concomitant]
     Active Substance: ROSUVASTATIN CALCIUM
     Indication: BLOOD CHOLESTEROL
  3. FOLIC ACID. [Concomitant]
     Active Substance: FOLIC ACID
     Indication: ANAEMIA
  4. PREDNISONE. [Suspect]
     Active Substance: PREDNISONE
     Indication: INFLAMMATION
     Dosage: WILL BEING TO REDUCE DOWN TO STOP MEDICINE
     Route: 065
  5. FENTANYL. [Suspect]
     Active Substance: FENTANYL
     Indication: PAIN
     Route: 062
  6. FENTANYL. [Suspect]
     Active Substance: FENTANYL
     Route: 062
  7. PRILOSEC [Concomitant]
     Active Substance: OMEPRAZOLE MAGNESIUM
     Indication: DYSPEPSIA
  8. VITAMIN D3 [Concomitant]
     Active Substance: CHOLECALCIFEROL
     Indication: VITAMIN D DEFICIENCY
  9. HUMIRA [Suspect]
     Active Substance: ADALIMUMAB
     Route: 058
  10. HUMIRA [Suspect]
     Active Substance: ADALIMUMAB
     Indication: CROHN^S DISEASE
     Route: 058
     Dates: start: 2015
  11. TESTOSTERONE CYPIONATE. [Suspect]
     Active Substance: TESTOSTERONE CYPIONATE
     Indication: BLOOD TESTOSTERONE DECREASED
     Route: 065
     Dates: start: 2016, end: 2016
  12. PENTASA [Concomitant]
     Active Substance: MESALAMINE
     Indication: PRODUCT USED FOR UNKNOWN INDICATION
  13. STOOL SOFTENER (DOCUSATE) [Concomitant]
     Active Substance: DOCUSATE
     Indication: CONSTIPATION PROPHYLAXIS
  14. CLONAZEPAM. [Concomitant]
     Active Substance: CLONAZEPAM
     Indication: TREMOR
  15. VITAMIN B12 [Concomitant]
     Active Substance: CYANOCOBALAMIN
     Indication: ANAEMIA
     Dosage: 1 CC/ML
  16. ALA-HIST [Concomitant]
     Indication: HYPERSENSITIVITY
  17. WELLBUTRIN [Concomitant]
     Active Substance: BUPROPION HYDROCHLORIDE
     Indication: ANXIETY
  18. FENTANYL. [Suspect]
     Active Substance: FENTANYL
     Route: 062
  19. OXYCODONE [Concomitant]
     Active Substance: OXYCODONE
     Indication: PAIN

REACTIONS (59)
  - Intestinal obstruction [Recovered/Resolved]
  - Abdominal distension [Unknown]
  - Decreased appetite [Unknown]
  - Weight increased [Not Recovered/Not Resolved]
  - Sinus disorder [Unknown]
  - Rash [Not Recovered/Not Resolved]
  - Arthralgia [Unknown]
  - Throat tightness [Unknown]
  - Intentional product misuse [Unknown]
  - Seasonal allergy [Not Recovered/Not Resolved]
  - Rash papular [Unknown]
  - Injection site haemorrhage [Recovered/Resolved]
  - Abdominal discomfort [Unknown]
  - Obstruction [Unknown]
  - Impaired quality of life [Not Recovered/Not Resolved]
  - Erection increased [Recovered/Resolved]
  - Feeling abnormal [Unknown]
  - Prostatic disorder [Not Recovered/Not Resolved]
  - Vision blurred [Not Recovered/Not Resolved]
  - Pain [Not Recovered/Not Resolved]
  - Musculoskeletal pain [Not Recovered/Not Resolved]
  - Injection site papule [Unknown]
  - Injection site warmth [Recovered/Resolved]
  - Injection site induration [Unknown]
  - Device difficult to use [Unknown]
  - Hyperhidrosis [Not Recovered/Not Resolved]
  - Cold sweat [Unknown]
  - Acrochordon [Not Recovered/Not Resolved]
  - Rash papular [Not Recovered/Not Resolved]
  - Drug ineffective [Recovered/Resolved]
  - Abdominal pain [Not Recovered/Not Resolved]
  - Viral infection [Unknown]
  - Fatigue [Not Recovered/Not Resolved]
  - Influenza like illness [Unknown]
  - Liver function test decreased [Unknown]
  - Injection site pain [Unknown]
  - Hypothyroidism [Recovered/Resolved]
  - Skin discolouration [Unknown]
  - Skin ulcer [Not Recovered/Not Resolved]
  - Abdominal adhesions [Unknown]
  - Pyrexia [Recovered/Resolved]
  - Dyspnoea [Recovered/Resolved]
  - Large intestinal obstruction [Unknown]
  - Abdominal pain upper [Unknown]
  - Vomiting [Unknown]
  - Amnesia [Not Recovered/Not Resolved]
  - Blood testosterone decreased [Unknown]
  - Nightmare [Unknown]
  - Abdominal distension [Unknown]
  - Headache [Not Recovered/Not Resolved]
  - Impaired healing [Not Recovered/Not Resolved]
  - Tremor [Not Recovered/Not Resolved]
  - Injection site bruising [Unknown]
  - Asthenia [Unknown]
  - Food intolerance [Unknown]
  - Skin infection [Not Recovered/Not Resolved]
  - Arthritis [Unknown]
  - Syncope [Unknown]
  - Injection site haemorrhage [Unknown]

NARRATIVE: CASE EVENT DATE: 2015
